FAERS Safety Report 5670769-7 (Version None)
Quarter: 2008Q1

REPORT INFORMATION
  Report Type: 
  Country: None (occurrence: None)
  Receive Date: 20080318
  Receipt Date: 20080307
  Transmission Date: 20080703
  Serious: Yes (Other)
  Sender: FDA-Public Use
  Company Number: US-ROCHE-552947

PATIENT
  Age: 67 Year
  Sex: Female
  Weight: 70.3 kg

DRUGS (2)
  1. TAMIFLU [Suspect]
     Dosage: REPORTED SHE FINISHED COMPLETE COURSE.
     Route: 048
     Dates: start: 20080206
  2. ANTIBIOTIC NOS [Concomitant]
     Indication: PNEUMONIA

REACTIONS (3)
  - LIMB INJURY [None]
  - LOSS OF CONSCIOUSNESS [None]
  - NAUSEA [None]
